FAERS Safety Report 9172907 (Version 1)
Quarter: 2012Q4

REPORT INFORMATION
  Report Type: 
  Country: US (occurrence: US)
  Receive Date: 20120911
  Receipt Date: 20120911
  Transmission Date: 20130627
  Serious: No
  Sender: FDA-Public Use
  Company Number: US-009507513-1209USA003484

PATIENT

DRUGS (1)
  1. IMPLANON [Suspect]
     Indication: CONTRACEPTION
     Dosage: every 3 years
     Route: 059
     Dates: start: 20120320

REACTIONS (4)
  - Decreased activity [Unknown]
  - Fatigue [Unknown]
  - Fatigue [Unknown]
  - Weight increased [Unknown]
